FAERS Safety Report 5310823-2 (Version None)
Quarter: 2007Q2

REPORT INFORMATION
  Report Type: 
  Country: None (occurrence: None)
  Receive Date: 20070428
  Receipt Date: 20070418
  Transmission Date: 20071010
  Serious: Yes (Hospitalization, Other)
  Sender: FDA-Public Use
  Company Number: US-PFIZER INC-2006140414

PATIENT
  Sex: Male

DRUGS (3)
  1. CELECOXIB [Suspect]
     Indication: ARTHRALGIA
     Dosage: TEXT:100MG AND 200MG
  2. BEXTRA [Suspect]
     Indication: ARTHRALGIA
     Dates: start: 20030213, end: 20031217
  3. VIOXX [Suspect]

REACTIONS (2)
  - CARDIAC PACEMAKER INSERTION [None]
  - DEEP VEIN THROMBOSIS [None]
